FAERS Safety Report 17135359 (Version 4)
Quarter: 2020Q1

REPORT INFORMATION
  Report Type: Spontaneous
  Country: US (occurrence: US)
  Receive Date: 20191210
  Receipt Date: 20200318
  Transmission Date: 20200409
  Serious: No
  Sender: FDA-Public Use
  Company Number: US-PFIZER INC-2019513571

PATIENT
  Age: 74 Year
  Sex: Female

DRUGS (1)
  1. IBRANCE [Suspect]
     Active Substance: PALBOCICLIB
     Indication: BREAST CANCER METASTATIC
     Dosage: 125 MG, CYCLIC (1 PO (ORAL) QD X 21 DAYS THEN OFF 7)
     Route: 048
     Dates: end: 20200220

REACTIONS (5)
  - Malaise [Unknown]
  - Asthenia [Unknown]
  - Nasopharyngitis [Unknown]
  - Walking disability [Unknown]
  - Vomiting [Unknown]
